FAERS Safety Report 6394953-2 (Version None)
Quarter: 2009Q4

REPORT INFORMATION
  Report Type: 
  Country: None (occurrence: None)
  Receive Date: 20091009
  Receipt Date: 20090928
  Transmission Date: 20100525
  Serious: Yes (Death, Hospitalization)
  Sender: FDA-Public Use
  Company Number: FR-PFIZER INC-2008055787

PATIENT
  Age: 48 Year

DRUGS (6)
  1. LINEZOLID [Suspect]
     Indication: TUBERCULOSIS
     Dosage: 600 MG, 2X/DAY
     Dates: start: 20060620, end: 20061006
  2. MOXIFLOXACIN HYDROCHLORIDE [Concomitant]
     Dosage: UNK
     Dates: start: 20060620
  3. ETHIONAMIDE [Concomitant]
     Dosage: UNK
     Dates: start: 20060620, end: 20060801
  4. CYCLOSERINE [Concomitant]
     Dosage: UNK
     Dates: start: 20060620
  5. CAPREOMYCIN [Concomitant]
     Dosage: UNK
     Dates: start: 20060620, end: 20060801
  6. P.A.S. [Concomitant]
     Dosage: UNK
     Dates: start: 20060620

REACTIONS (1)
  - LACTIC ACIDOSIS [None]
